FAERS Safety Report 9140200 (Version 2)
Quarter: 2013Q2

REPORT INFORMATION
  Report Type: Report from Study
  Country: JP (occurrence: JP)
  Receive Date: 20130305
  Receipt Date: 20130429
  Transmission Date: 20140414
  Serious: Yes (Other)
  Sender: FDA-Public Use
  Company Number: PHHY2013JP020822

PATIENT
  Age: 58 Year
  Sex: Male

DRUGS (7)
  1. FTY 720 [Suspect]
     Indication: MULTIPLE SCLEROSIS
     Dosage: 0.5 MG, QD
     Route: 048
     Dates: start: 20120730, end: 20121116
  2. BAYASPIRIN [Concomitant]
     Dosage: 100 MG, DAILY
     Route: 048
  3. GAMOFA D [Concomitant]
     Dosage: 40 MG, DAILY
     Route: 048
  4. CRESTOR [Concomitant]
     Dosage: 2.5 MG, DAILY
     Route: 048
  5. CILOSTAZOL [Concomitant]
     Dosage: 100 MG, DAILY
     Route: 048
  6. GLIMICRON [Concomitant]
     Dosage: 40 MG, DAILY
     Route: 048
  7. GLYCORAN [Concomitant]
     Dosage: 250 MG, DAILY
     Route: 048

REACTIONS (1)
  - Retinal disorder [Not Recovered/Not Resolved]
